FAERS Safety Report 15896458 (Version 6)
Quarter: 2019Q3

REPORT INFORMATION
  Report Type: Spontaneous
  Country: US (occurrence: US)
  Receive Date: 20190131
  Receipt Date: 20190925
  Transmission Date: 20191004
  Serious: Yes (Other)
  Sender: FDA-Public Use
  Company Number: US-PFIZER INC-2019046194

PATIENT
  Age: 74 Year
  Sex: Female
  Weight: 80 kg

DRUGS (5)
  1. LYRICA [Suspect]
     Active Substance: PREGABALIN
     Indication: MUSCULOSKELETAL PAIN
     Dosage: 225 MG, 2X/DAY 75 MG 3 TABLETS 2 TIMES/DAY)
  2. LYRICA [Suspect]
     Active Substance: PREGABALIN
     Indication: NEURALGIA
     Dosage: 150 MG, 2X/DAY
     Route: 048
  3. LYRICA [Suspect]
     Active Substance: PREGABALIN
     Indication: PAIN IN EXTREMITY
  4. LYRICA [Suspect]
     Active Substance: PREGABALIN
     Indication: PAIN IN EXTREMITY
     Dosage: 75 MG, UNK
  5. CARAFATE [Concomitant]
     Active Substance: SUCRALFATE
     Indication: OESOPHAGEAL ULCER
     Dosage: UNK

REACTIONS (14)
  - Fall [Unknown]
  - Poor peripheral circulation [Not Recovered/Not Resolved]
  - Arthralgia [Unknown]
  - Head injury [Unknown]
  - Drug ineffective [Unknown]
  - Ear infection [Unknown]
  - Memory impairment [Unknown]
  - Hypoacusis [Unknown]
  - Upper limb fracture [Unknown]
  - Swelling [Unknown]
  - Arthritis [Unknown]
  - Sinusitis [Unknown]
  - Malaise [Unknown]
  - Weight increased [Unknown]
